FAERS Safety Report 6109347-4 (Version None)
Quarter: 2009Q1

REPORT INFORMATION
  Report Type: 
  Country: None (occurrence: None)
  Receive Date: 20090306
  Receipt Date: 20090306
  Transmission Date: 20090719
  Serious: Yes (Disabling)
  Sender: FDA-Public Use
  Company Number: None

PATIENT
  Age: 48 Year
  Sex: Female
  Weight: 84.8226 kg

DRUGS (1)
  1. ABILIFY [Suspect]
     Indication: MAJOR DEPRESSION
     Dosage: 5 MG 1 QD PO 1 YEAR 2 MONTHS
     Route: 048
     Dates: start: 20080115, end: 20090305

REACTIONS (1)
  - EXTRAPYRAMIDAL DISORDER [None]
